FAERS Safety Report 6644286-1 (Version None)
Quarter: 2010Q1

REPORT INFORMATION
  Report Type: 
  Country: None (occurrence: None)
  Receive Date: 20100319
  Receipt Date: 20100319
  Transmission Date: 20100710
  Serious: Yes (Hospitalization)
  Sender: FDA-Public Use
  Company Number: None

PATIENT
  Age: 84 Year
  Sex: Male

DRUGS (18)
  1. WARFARIN SODIUM [Suspect]
     Indication: CORONARY ARTERY DISEASE
     Dosage: 4 MG TTH SS PO, CHRONIC
     Route: 048
  2. WARFARIN SODIUM [Suspect]
     Indication: CORONARY ARTERY DISEASE
     Dosage: 6 MG M W F PO, CHRONIC
     Route: 048
  3. FLOMAX [Concomitant]
  4. ARICEPT [Concomitant]
  5. SIMVASTATIN [Concomitant]
  6. LEVOTHYROXINE SODIUM [Concomitant]
  7. SEROQUEL [Concomitant]
  8. COLACE [Concomitant]
  9. MIRALAX [Concomitant]
  10. VIT B 12 [Concomitant]
  11. MIRALAX IP [Concomitant]
  12. VIT 12 [Concomitant]
  13. DOCOLAX [Concomitant]
  14. GLYCERIN SUPP. [Concomitant]
  15. MOM [Concomitant]
  16. AMLODIPINE [Concomitant]
  17. METOPROL [Concomitant]
  18. FLEETS PRN [Concomitant]

REACTIONS (9)
  - COAGULOPATHY [None]
  - DECREASED APPETITE [None]
  - DIARRHOEA [None]
  - GASTROINTESTINAL HAEMORRHAGE [None]
  - HAEMATOMA [None]
  - INJECTION SITE HAEMORRHAGE [None]
  - INTERNATIONAL NORMALISED RATIO INCREASED [None]
  - NAUSEA [None]
  - RENAL FAILURE ACUTE [None]
